FAERS Safety Report 9693042 (Version 9)
Quarter: 2019Q1

REPORT INFORMATION
  Report Type: Report from Study
  Country: US (occurrence: US)
  Receive Date: 20131118
  Receipt Date: 20190128
  Transmission Date: 20190418
  Serious: Yes (Disabling, Other)
  Sender: FDA-Public Use
  Company Number: US-SA-2013SA118179

PATIENT
  Age: 57 Year
  Sex: Female

DRUGS (19)
  1. BACLOFEN. [Concomitant]
     Active Substance: BACLOFEN
  2. LEVETIRACETAM. [Concomitant]
     Active Substance: LEVETIRACETAM
  3. ACTONEL [Concomitant]
     Active Substance: RISEDRONATE SODIUM
  4. ELIDEL [Concomitant]
     Active Substance: PIMECROLIMUS
  5. DULOXETINE HCL [Concomitant]
     Active Substance: DULOXETINE HYDROCHLORIDE
  6. SIMVASTATIN. [Concomitant]
     Active Substance: SIMVASTATIN
  7. CALCIPOTRIENE. [Concomitant]
     Active Substance: CALCIPOTRIENE
  8. MOMETASONE FUROATE. [Concomitant]
     Active Substance: MOMETASONE FUROATE
  9. METOCLOPRAMIDE HCL [Concomitant]
     Active Substance: METOCLOPRAMIDE HYDROCHLORIDE
  10. LEVOTHYROXINE SODIUM. [Concomitant]
     Active Substance: LEVOTHYROXINE SODIUM
  11. VALACYCLOVIR HCL [Concomitant]
     Active Substance: VALACYCLOVIR HYDROCHLORIDE
  12. LISINOPRIL. [Concomitant]
     Active Substance: LISINOPRIL
  13. COPAXONE [Concomitant]
     Active Substance: GLATIRAMER ACETATE
  14. FLUOCINONIDE. [Concomitant]
     Active Substance: FLUOCINONIDE
  15. LAMOTRIGINE. [Concomitant]
     Active Substance: LAMOTRIGINE
  16. METRONIDAZOLE. [Concomitant]
     Active Substance: METRONIDAZOLE
  17. TERIFLUNOMIDE. [Suspect]
     Active Substance: TERIFLUNOMIDE
     Indication: MULTIPLE SCLEROSIS
     Dosage: 14 MG,QD
     Route: 048
     Dates: start: 20131025
  18. CALCIPOTRIENE. [Concomitant]
     Active Substance: CALCIPOTRIENE
     Dosage: UNK
  19. UREA. [Concomitant]
     Active Substance: UREA

REACTIONS (13)
  - Wheelchair user [Unknown]
  - Focal dyscognitive seizures [Not Recovered/Not Resolved]
  - Eczema [Not Recovered/Not Resolved]
  - Diplopia [Unknown]
  - Aura [Unknown]
  - Hair texture abnormal [Not Recovered/Not Resolved]
  - Skin ulcer [Unknown]
  - Blister [Unknown]
  - Asthenia [Unknown]
  - Hypersomnia [Unknown]
  - Colitis [Recovering/Resolving]
  - Gastrointestinal disorder [Recovering/Resolving]
  - Alopecia [Unknown]

NARRATIVE: CASE EVENT DATE: 201310
